FAERS Safety Report 5584487-7 (Version None)
Quarter: 2008Q1

REPORT INFORMATION
  Report Type: 
  Country: None (occurrence: None)
  Receive Date: 20080103
  Receipt Date: 20070419
  Transmission Date: 20080703
  Serious: Yes (Hospitalization, Other)
  Sender: FDA-Public Use
  Company Number: 2007VX001205

PATIENT
  Age: 73 Year
  Sex: Male

DRUGS (9)
  1. PERMAX [Suspect]
     Indication: PARKINSON'S DISEASE
     Dosage: 250 UG;TID;PO
     Route: 048
     Dates: end: 20060101
  2. MENESIT [Concomitant]
  3. PARMIPEXOLE [Concomitant]
  4. PROSTAL [Concomitant]
  5. HARNAL [Concomitant]
  6. MAGNESIUM OXIDE [Concomitant]
  7. MUCODYNE [Concomitant]
  8. MUCOSAL [Concomitant]
  9. AMBROXOL HYDROCHLORIDE [Concomitant]

REACTIONS (4)
  - APHAGIA [None]
  - PERICARDIAL EFFUSION [None]
  - PERICARDITIS [None]
  - PLEURAL EFFUSION [None]
